FAERS Safety Report 6627908-0 (Version None)
Quarter: 2010Q1

REPORT INFORMATION
  Report Type: 
  Country: None (occurrence: None)
  Receive Date: 20100311
  Receipt Date: 20090311
  Transmission Date: 20100710
  Serious: No
  Sender: FDA-Public Use
  Company Number: A0772884A

PATIENT
  Age: 2 Year
  Sex: Female

DRUGS (1)
  1. NICOTINE POLACRILEX [Suspect]
     Route: 002
     Dates: start: 20050820, end: 20050820

REACTIONS (1)
  - ACCIDENTAL EXPOSURE [None]
